FAERS Safety Report 7632477-2 (Version None)
Quarter: 2011Q3

REPORT INFORMATION
  Report Type: 
  Country: None (occurrence: None)
  Receive Date: 20110725
  Receipt Date: 20100917
  Transmission Date: 20111222
  Serious: No
  Sender: FDA-Public Use
  Company Number: US-BRISTOL-MYERS SQUIBB COMPANY-15292469

PATIENT
  Age: 82 Year
  Sex: Male

DRUGS (14)
  1. ASPIRIN [Concomitant]
  2. LASIX [Concomitant]
  3. DIGOXIN [Concomitant]
  4. POTASSIUM [Concomitant]
  5. ASPIRIN [Concomitant]
  6. IMDUR [Concomitant]
  7. COREG [Concomitant]
  8. PRAVASTATIN SODIUM [Concomitant]
  9. ALTACE [Concomitant]
  10. JANUVIA [Concomitant]
  11. COUMADIN [Suspect]
     Dosage: 1 DF = 2.5-5MG
  12. FLOMAX [Concomitant]
  13. NIACIN [Concomitant]
  14. MULTI-VITAMIN [Concomitant]

REACTIONS (1)
  - INTERNATIONAL NORMALISED RATIO ABNORMAL [None]
